FAERS Safety Report 15202074 (Version 1)
Quarter: 2018Q3

REPORT INFORMATION
  Report Type: Spontaneous
  Country: US (occurrence: US)
  Receive Date: 20180726
  Receipt Date: 20180726
  Transmission Date: 20181010
  Serious: Yes (Other)
  Sender: FDA-Public Use
  Company Number: US-LUPIN PHARMACEUTICALS INC.-2018-05199

PATIENT
  Age: 43 Year
  Sex: Female

DRUGS (1)
  1. BLISOVI 24 FE [Suspect]
     Active Substance: ETHINYL ESTRADIOL\NORETHINDRONE ACETATE
     Indication: ORAL CONTRACEPTION
     Dosage: 1 DF, QD
     Route: 048

REACTIONS (2)
  - Coeliac disease [Not Recovered/Not Resolved]
  - Dyspepsia [Not Recovered/Not Resolved]
